FAERS Safety Report 5468727-0 (Version None)
Quarter: 2007Q3

REPORT INFORMATION
  Report Type: 
  Country: None (occurrence: None)
  Receive Date: 20070820
  Receipt Date: 20070619
  Transmission Date: 20080115
  Serious: No
  Sender: FDA-Public Use
  Company Number: WAES 0706USA03891

PATIENT

DRUGS (2)
  1. JANUVIA [Suspect]
     Dates: start: 20070101, end: 20070101
  2. GLUCOPHAGE [Concomitant]

REACTIONS (1)
  - RASH [None]
